FAERS Safety Report 5694910-5 (Version None)
Quarter: 2008Q2

REPORT INFORMATION
  Report Type: 
  Country: None (occurrence: None)
  Receive Date: 20080404
  Receipt Date: 20080401
  Transmission Date: 20081010
  Serious: Yes (Other)
  Sender: FDA-Public Use
  Company Number: JP-BRISTOL-MYERS SQUIBB COMPANY-14054910

PATIENT
  Age: 78 Year
  Sex: Male

DRUGS (2)
  1. BRIPLATIN [Suspect]
     Indication: GASTRIC CANCER
     Route: 041
     Dates: start: 20071219, end: 20071219
  2. TAXOL [Concomitant]
     Indication: GASTRIC CANCER
     Route: 041

REACTIONS (1)
  - ANAPHYLACTOID SHOCK [None]
